FAERS Safety Report 11052126 (Version 1)
Quarter: 2015Q2

REPORT INFORMATION
  Report Type: Spontaneous
  Country: RU (occurrence: RU)
  Receive Date: 20150421
  Receipt Date: 20150421
  Transmission Date: 20150821
  Serious: Yes (Hospitalization)
  Sender: FDA-Public Use
  Company Number: RU-TEVA-556112ISR

PATIENT
  Age: 58 Year
  Sex: Female

DRUGS (1)
  1. BUDENIT STERI-NEB [Suspect]
     Active Substance: BUDESONIDE
     Route: 055

REACTIONS (4)
  - Asthma [Recovering/Resolving]
  - Bronchospasm [Recovering/Resolving]
  - Asthenia [Recovering/Resolving]
  - Dry mouth [Recovering/Resolving]
